FAERS Safety Report 8136281-0 (Version None)
Quarter: 2012Q1

REPORT INFORMATION
  Report Type: 
  Country: None (occurrence: None)
  Receive Date: 20120103
  Receipt Date: 20111024
  Transmission Date: 20120608
  Serious: No
  Sender: FDA-Public Use
  Company Number: AE-2011-002646

PATIENT
  Age: 52 Year
  Sex: Female
  Weight: 76.2043 kg

DRUGS (10)
  1. RIBAVIRIN [Concomitant]
  2. CYCLOBENZAPRINE [Concomitant]
  3. BLACK COHOSH (CIMICIFUGARACEMOSA ROOT) [Concomitant]
  4. LYRICA [Concomitant]
  5. VITAMIN B6 [Concomitant]
  6. IBUPROFEN [Concomitant]
  7. INCIVEK [Suspect]
     Dosage: (3 IN 1 D) , ORAL
     Route: 048
     Dates: start: 20111021
  8. PEGASYS [Concomitant]
  9. ASPIRIN [Concomitant]
  10. TYLENOL ES (PARACETAMOL) [Concomitant]

REACTIONS (8)
  - HEADACHE [None]
  - HYPERHIDROSIS [None]
  - PYREXIA [None]
  - CHILLS [None]
  - EYE PAIN [None]
  - POLLAKIURIA [None]
  - OEDEMA PERIPHERAL [None]
  - RASH [None]
